FAERS Safety Report 24416222 (Version 2)
Quarter: 2024Q4

REPORT INFORMATION
  Report Type: Spontaneous
  Country: US (occurrence: US)
  Receive Date: 20241009
  Receipt Date: 20241011
  Transmission Date: 20250115
  Serious: No
  Sender: BAUSCH AND LOMB
  Company Number: US-BAUSCH-BL-2024-014989

PATIENT
  Sex: Female

DRUGS (1)
  1. RETIN-A MICRO [Suspect]
     Active Substance: TRETINOIN
     Indication: Product used for unknown indication
     Dosage: 0.1% 45 GM
     Route: 065

REACTIONS (4)
  - Acne [Unknown]
  - Condition aggravated [Unknown]
  - Therapy interrupted [Unknown]
  - Product availability issue [Unknown]
